FAERS Safety Report 8276286-2 (Version None)
Quarter: 2012Q2

REPORT INFORMATION
  Report Type: 
  Country: None (occurrence: None)
  Receive Date: 20120409
  Receipt Date: 20120326
  Transmission Date: 20120825
  Serious: Yes (Other)
  Sender: FDA-Public Use
  Company Number: 7117141

PATIENT
  Age: 47 Year
  Sex: Female

DRUGS (6)
  1. SYNTHROID [Suspect]
     Indication: HYPOTHYROIDISM
     Dosage: 142.8571 MCG (1000 MCG, 1 IN 1 WK)
     Route: 048
     Dates: start: 20120305
  2. LITORBA (ATORVASTATIN) (ATORVASTATIN) [Concomitant]
  3. LEVOTHYROXINE SODIUM [Suspect]
     Indication: HYPOTHYROIDISM
     Dosage: 150 MCG 6/WEEK + 100MCG 1/WEEK (150 MCG, 1IN 1 D) 150MCG 6/WEEK + 100MCG 1/WEEK (1000 MCG, 1 IN 1 WK
     Route: 048
     Dates: start: 20111101, end: 20120201
  4. LEVOTHYROXINE SODIUM [Suspect]
     Indication: HYPOTHYROIDISM
     Dosage: 150 MCG 6/WEEK + 100MCG 1/WEEK (150 MCG, 1IN 1 D) 150MCG 6/WEEK + 100MCG 1/WEEK (1000 MCG, 1 IN 1 WK
     Route: 048
     Dates: start: 20120201, end: 20120227
  5. LEVOTHYROXINE SODIUM [Suspect]
     Indication: HYPOTHYROIDISM
     Dosage: (850 MCG, OLD FORMULATION) (850 MCG, NEW FORMULATION)
     Dates: start: 20110901, end: 20111101
  6. LEVOTHYROXINE SODIUM [Suspect]
     Indication: HYPOTHYROIDISM
     Dosage: (850 MCG, OLD FORMULATION) (850 MCG, NEW FORMULATION)
     Dates: start: 19960101, end: 20110901

REACTIONS (3)
  - ALLERGY TO PLANTS [None]
  - DYSPNOEA [None]
  - ASPHYXIA [None]
